FAERS Safety Report 11545463 (Version 5)
Quarter: 2015Q4

REPORT INFORMATION
  Report Type: Spontaneous
  Country: JP (occurrence: JP)
  Receive Date: 20150924
  Receipt Date: 20151226
  Transmission Date: 20160304
  Serious: Yes (Death, Hospitalization, Other)
  Sender: FDA-Public Use
  Company Number: JP-AMGEN-JPNSP2015099089

PATIENT
  Age: 62 Year
  Sex: Female
  Weight: 40 kg

DRUGS (14)
  1. FENTANYL. [Concomitant]
     Active Substance: FENTANYL
     Indication: INTRAMEDULLARY ROD INSERTION
  2. DIPRIVAN [Concomitant]
     Active Substance: PROPOFOL
     Indication: BREAST CANCER
     Dosage: 100 ML, UNK
     Route: 050
     Dates: start: 20130910, end: 20130910
  3. ULTIVA [Concomitant]
     Active Substance: REMIFENTANIL HYDROCHLORIDE
     Indication: INTRAMEDULLARY ROD INSERTION
  4. SEIBULE [Concomitant]
     Active Substance: MIGLITOL
     Indication: DIABETES MELLITUS
     Dosage: 50 MG, TID
     Route: 048
     Dates: start: 201308, end: 20140724
  5. FENTANYL. [Concomitant]
     Active Substance: FENTANYL
     Indication: BREAST CANCER
     Dosage: 0.3 MG, UNK
     Route: 050
     Dates: start: 20130910, end: 20130910
  6. ULTIVA [Concomitant]
     Active Substance: REMIFENTANIL HYDROCHLORIDE
     Indication: BREAST CANCER
     Dosage: 2 MG, UNK
     Route: 050
     Dates: start: 20130910, end: 20130910
  7. DROLEPTAN [Concomitant]
     Active Substance: DROPERIDOL
     Indication: BREAST CANCER
     Dosage: UNK
     Route: 050
     Dates: start: 20130910, end: 20130910
  8. TRAZENTA [Concomitant]
     Active Substance: LINAGLIPTIN
     Indication: DIABETES MELLITUS
     Dosage: 5 MG, QD
     Route: 048
     Dates: start: 201308, end: 20140724
  9. DIPRIVAN [Concomitant]
     Active Substance: PROPOFOL
     Indication: INTRAMEDULLARY ROD INSERTION
  10. DROLEPTAN [Concomitant]
     Active Substance: DROPERIDOL
     Indication: INTRAMEDULLARY ROD INSERTION
  11. DENOTAS [Concomitant]
     Active Substance: CALCIUM CARBONATE\CHOLECALCIFEROL\MAGNESIUM CARBONATE
     Indication: METASTASES TO BONE
     Dosage: 2 DF, QD
     Route: 048
     Dates: start: 20130830, end: 20141218
  12. RANMARK [Suspect]
     Active Substance: DENOSUMAB
     Indication: METASTASES TO BONE
     Dosage: 120 MG, Q4WK
     Route: 058
     Dates: start: 20130830, end: 201412
  13. NOVORAPID [Concomitant]
     Active Substance: INSULIN ASPART
     Indication: DIABETES MELLITUS
     Dosage: UNK
     Route: 050
     Dates: start: 20140724, end: 20150611
  14. ARIMIDEX [Concomitant]
     Active Substance: ANASTROZOLE
     Indication: BREAST CANCER
     Dosage: 1 MG, QD
     Route: 048
     Dates: start: 20130824, end: 20131214

REACTIONS (1)
  - Osteonecrosis of jaw [Not Recovered/Not Resolved]

NARRATIVE: CASE EVENT DATE: 20141222
